FAERS Safety Report 6419746-9 (Version None)
Quarter: 2009Q4

REPORT INFORMATION
  Report Type: 
  Country: None (occurrence: None)
  Receive Date: 20091013
  Receipt Date: 20090824
  Transmission Date: 20100525
  Serious: No
  Sender: FDA-Public Use
  Company Number: 2009BM000202

PATIENT
  Age: 4 Year
  Sex: Female
  Weight: 18.9 kg

DRUGS (1)
  1. KUVAN [Suspect]
     Indication: PHENYLKETONURIA
     Dosage: 300 MG;QD;PO
     Route: 048
     Dates: start: 20080512

REACTIONS (1)
  - EPISTAXIS [None]
